FAERS Safety Report 23250291 (Version 2)
Quarter: 2023Q4

REPORT INFORMATION
  Report Type: Report from Study
  Country: CO (occurrence: CO)
  Receive Date: 20231201
  Receipt Date: 20231211
  Transmission Date: 20240109
  Serious: Yes (Hospitalization, Other)
  Sender: FDA-Public Use
  Company Number: CO-UCBSA-2023056951

PATIENT
  Age: 12 Year
  Sex: Female
  Weight: 37 kg

DRUGS (2)
  1. LACOSAMIDE [Suspect]
     Active Substance: LACOSAMIDE
     Indication: Epilepsy
     Dosage: 10 MILLILITER, 2X/DAY (BID), EVERY 12 HRS
     Route: 048
     Dates: start: 20220825
  2. LEVETIRACETAM GENERICS [Concomitant]
     Indication: Epilepsy
     Dosage: UNK (GENERIC)

REACTIONS (2)
  - Seizure [Recovered/Resolved]
  - Syncope [Recovered/Resolved]

NARRATIVE: CASE EVENT DATE: 20231116
